FAERS Safety Report 12765983 (Version 1)
Quarter: 2016Q3

REPORT INFORMATION
  Report Type: Spontaneous
  Country: US (occurrence: US)
  Receive Date: 20160920
  Receipt Date: 20160920
  Transmission Date: 20161109
  Serious: Yes (Other)
  Sender: FDA-Public Use
  Company Number: None

PATIENT
  Age: 77 Year
  Sex: Female
  Weight: 103.5 kg

DRUGS (10)
  1. LOSARTAN. [Concomitant]
     Active Substance: LOSARTAN
  2. LIOTHYRONINE ABBOT LAB [Suspect]
     Active Substance: LIOTHYRONINE
     Indication: THYROID OPERATION
     Route: 048
     Dates: start: 20090513, end: 20140617
  3. AMLODIPINE BESYLATE. [Concomitant]
     Active Substance: AMLODIPINE BESYLATE
  4. MSM [Concomitant]
     Active Substance: DIMETHYL SULFONE
  5. ATENOLOL. [Concomitant]
     Active Substance: ATENOLOL
  6. POTASSIUM [Concomitant]
     Active Substance: POTASSIUM
  7. PURITAN PRIDE ABC PLUS SENIOR VIT C [Concomitant]
  8. PRIMROSE OIL [Concomitant]
  9. CALCIUM MAGNESIUM ZINC [Concomitant]
     Active Substance: CALCIUM\MAGNESIUM\ZINC
  10. VITAMIN E [Concomitant]
     Active Substance: .ALPHA.-TOCOPHEROL

REACTIONS (6)
  - Miliaria [None]
  - Urticaria [None]
  - Pruritus [None]
  - Rash [None]
  - Insomnia [None]
  - Drug hypersensitivity [None]

NARRATIVE: CASE EVENT DATE: 20090810
